FAERS Safety Report 23355729 (Version 1)
Quarter: 2024Q1

REPORT INFORMATION
  Report Type: Report from Study
  Country: US (occurrence: US)
  Receive Date: 20240102
  Receipt Date: 20240102
  Transmission Date: 20240410
  Serious: Yes (Other)
  Sender: FDA-Public Use
  Company Number: US-SA-SAC20231228000422

PATIENT
  Age: 41 Year
  Sex: Male

DRUGS (4)
  1. CAPLACIZUMAB-YHDP [Suspect]
     Active Substance: CAPLACIZUMAB-YHDP
     Indication: Thrombotic thrombocytopenic purpura
     Dosage: 11 (UNITS NOT PROVIDED), QD
     Route: 058
     Dates: start: 20231217
  2. CAPLACIZUMAB-YHDP [Suspect]
     Active Substance: CAPLACIZUMAB-YHDP
     Indication: Thrombotic thrombocytopenic purpura
     Dosage: 11 (UNITS NOT PROVIDED), QD
     Route: 058
     Dates: start: 20231217
  3. CAPLACIZUMAB-YHDP [Suspect]
     Active Substance: CAPLACIZUMAB-YHDP
     Indication: Thrombotic thrombocytopenic purpura
     Dosage: 11 (UNITS NOT PROVIDED), QD
     Route: 058
     Dates: start: 20231217
  4. CAPLACIZUMAB-YHDP [Suspect]
     Active Substance: CAPLACIZUMAB-YHDP
     Indication: Thrombotic thrombocytopenic purpura
     Dosage: 11 (UNITS NOT PROVIDED), QD
     Route: 058
     Dates: start: 20231217

REACTIONS (2)
  - Thrombocytopenia [Recovering/Resolving]
  - ADAMTS13 activity decreased [Recovering/Resolving]

NARRATIVE: CASE EVENT DATE: 20231201
